FAERS Safety Report 6710013-2 (Version None)
Quarter: 2010Q2

REPORT INFORMATION
  Report Type: 
  Country: None (occurrence: None)
  Receive Date: 20100504
  Receipt Date: 20100422
  Transmission Date: 20101027
  Serious: Yes (Other)
  Sender: FDA-Public Use
  Company Number: US-PFIZER INC-2009293055

PATIENT
  Sex: Female
  Weight: 61.2 kg

DRUGS (7)
  1. ZOLOFT [Suspect]
     Indication: POST-TRAUMATIC STRESS DISORDER
     Dates: start: 20010401, end: 20080101
  2. ZOLOFT [Suspect]
     Indication: SOCIAL PHOBIA
  3. ZOLOFT [Suspect]
     Indication: DEPRESSION
  4. MELATONIN [Concomitant]
     Dosage: UNK
  5. AMBIEN [Concomitant]
     Dosage: UNK
  6. FLEXERIL [Concomitant]
     Indication: BACK PAIN
     Dosage: UNK
  7. IBUPROFEN [Concomitant]
     Indication: BACK PAIN
     Dosage: UNK

REACTIONS (6)
  - CONFUSIONAL STATE [None]
  - FATIGUE [None]
  - FEELING ABNORMAL [None]
  - INSOMNIA [None]
  - IRRITABILITY [None]
  - MENTAL IMPAIRMENT [None]
